FAERS Safety Report 4760581-5 (Version None)
Quarter: 2005Q3

REPORT INFORMATION
  Report Type: 
  Country: None (occurrence: None)
  Receive Date: 20050902
  Receipt Date: 20050821
  Transmission Date: 20060218
  Serious: Yes (Death, Hospitalization)
  Sender: FDA-Public Use
  Company Number: JP-KINGPHARMUSA00001-K200501117

PATIENT
  Age: 83 Year
  Sex: Male
  Weight: 54 kg

DRUGS (4)
  1. PROCANBID [Suspect]
     Indication: ATRIAL FIBRILLATION
     Dosage: 200 MG, SINGLE
     Route: 042
     Dates: start: 20021107, end: 20021107
  2. CIPROFLOXACIN [Concomitant]
     Indication: RENAL CYST INFECTION
     Dosage: 300 MG, QD
     Dates: end: 20030904
  3. CLINDAMYCIN [Concomitant]
     Indication: RENAL CYST INFECTION
     Dosage: 1200 MG, QD
     Dates: end: 20030904
  4. AMIKACIN [Concomitant]
     Indication: RENAL CYST INFECTION
     Dosage: 400 MG, QW
     Dates: end: 20030904

REACTIONS (10)
  - ABDOMINAL DISTENSION [None]
  - ABDOMINAL HERNIA [None]
  - ASTHENIA [None]
  - DECREASED APPETITE [None]
  - GASTROINTESTINAL OEDEMA [None]
  - HAEMODIALYSIS [None]
  - ILEUS PARALYTIC [None]
  - INTESTINAL PERFORATION [None]
  - RENAL IMPAIRMENT [None]
  - SKIN LACERATION [None]
